FAERS Safety Report 10936336 (Version 1)
Quarter: 2015Q1

REPORT INFORMATION
  Report Type: Spontaneous
  Country: US (occurrence: None)
  Receive Date: 20150320
  Receipt Date: 20150320
  Transmission Date: 20150721
  Serious: No
  Sender: FDA-Public Use
  Company Number: None

PATIENT
  Age: 63 Year
  Sex: Female

DRUGS (1)
  1. COPAXONE [Suspect]
     Active Substance: GLATIRAMER ACETATE
     Indication: MULTIPLE SCLEROSIS
     Route: 058

REACTIONS (6)
  - Multiple sclerosis relapse [None]
  - Injection site swelling [None]
  - Injection site pruritus [None]
  - Injection site mass [None]
  - Weight increased [None]
  - Injection site bruising [None]

NARRATIVE: CASE EVENT DATE: 20150311
